FAERS Safety Report 24706463 (Version 1)
Quarter: 2024Q4

REPORT INFORMATION
  Report Type: Spontaneous
  Country: CA (occurrence: CA)
  Receive Date: 20241206
  Receipt Date: 20241206
  Transmission Date: 20250115
  Serious: Yes (Disabling, Other)
  Sender: BAXTER
  Company Number: CA-BAXTER-2024BAX028746

PATIENT
  Age: 43 Year
  Sex: Female
  Weight: 68 kg

DRUGS (73)
  1. ACETAMINOPHEN [Suspect]
     Active Substance: ACETAMINOPHEN
     Indication: Product used for unknown indication
     Dosage: (DOSAGE FORM: NOT SPECIFIED) 10 MILLIGRAMAT AN UNSPECIFIED FREQUENCY
     Route: 065
  2. CALCIUM GLUCONATE [Suspect]
     Active Substance: CALCIUM GLUCONATE
     Indication: Product used for unknown indication
     Dosage: (DOSAGE FORM: NOT SPECIFIED) AT AN UNSPECIFIED DOSE AND FREQUENCY
     Route: 065
  3. ACTEMRA [Suspect]
     Active Substance: TOCILIZUMAB
     Indication: Rheumatoid arthritis
     Dosage: (DOSAGE FORM: NOT SPECIFIED) AT AN UNSPECIFIED DOSE AND FREQUENCY
     Route: 065
  4. ALENDRONATE SODIUM [Suspect]
     Active Substance: ALENDRONATE SODIUM
     Indication: Rheumatoid arthritis
     Dosage: (DOSAGE FORM: UNKNOWN) AT AN UNSPECIFIED DOSE AND FREQUENCY
     Route: 016
  5. ALENDRONIC ACID [Suspect]
     Active Substance: ALENDRONIC ACID
     Indication: Product used for unknown indication
     Route: 048
  6. PREDNISONE [Suspect]
     Active Substance: PREDNISONE
     Indication: Product used for unknown indication
     Dosage: 40 MILLIGRAM AT AN UNSPECIFIED FREQUENCY
     Route: 065
  7. ARAVA [Suspect]
     Active Substance: LEFLUNOMIDE
     Indication: Rheumatoid arthritis
     Route: 065
  8. CALCIUM CARBONATE [Suspect]
     Active Substance: CALCIUM CARBONATE
     Indication: Product used for unknown indication
     Dosage: (DOSAGE FORM: NOT SPECIFIED) AT AN UNSPECIFIED DOSE AND FREQUENCY
     Route: 065
  9. CELEBREX [Suspect]
     Active Substance: CELECOXIB
     Indication: Product used for unknown indication
     Dosage: 20 MILLIGRAM AT AN UNSPECIFIED FREQUENCY
     Route: 065
  10. CELEBREX [Suspect]
     Active Substance: CELECOXIB
     Dosage: 2 DOSAGE FORMS AT AN UNSPECIFIED FREQUENCY
     Route: 065
  11. CETIRIZINE [Suspect]
     Active Substance: CETIRIZINE HYDROCHLORIDE
     Indication: Product used for unknown indication
     Dosage: 10 MILLIGRAM AT AN UNSPECIFIED FREQUENCY
     Route: 065
  12. CHLORAPREP [Suspect]
     Active Substance: CHLORHEXIDINE GLUCONATE\ISOPROPYL ALCOHOL
     Indication: Rheumatoid arthritis
     Route: 061
  13. CHLORHEXIDINE [Suspect]
     Active Substance: CHLORHEXIDINE
     Indication: Product used for unknown indication
     Dosage: (DOSAGE FORM: NOT SPECIFIED) AT AN UNSPECIFIED DOSE AND FREQUENCY
     Route: 061
  14. CHLORHEXIDINE GLUCONATE\ISOPROPYL ALCOHOL [Suspect]
     Active Substance: CHLORHEXIDINE GLUCONATE\ISOPROPYL ALCOHOL
     Indication: Product used for unknown indication
     Dosage: (DOSAGE FORM: NOT SPECIFIED) AT AN UNSPECIFIED DOSE AND FREQUENCY
     Route: 002
  15. CHOLECALCIFEROL [Suspect]
     Active Substance: CHOLECALCIFEROL
     Indication: Product used for unknown indication
     Dosage: (DOSAGE FORM: NOT SPECIFIED) AT AN UNSPECIFIED DOSE AND FREQUENCY
     Route: 016
  16. CIMZIA [Suspect]
     Active Substance: CERTOLIZUMAB PEGOL
     Indication: Rheumatoid arthritis
     Dosage: 2 DOSAGE FORMS AT AN UNSPECIFIED FREQUENCY
     Route: 058
  17. CORTISONE [Suspect]
     Active Substance: CORTISONE
     Indication: Product used for unknown indication
     Dosage: (DOSAGE FORM: NOT SPECIFIED) AT AN UNSPECIFIED DOSE AND FREQUENCY
     Route: 065
  18. CORTISONE ACETATE [Suspect]
     Active Substance: CORTISONE ACETATE
     Indication: Rheumatoid arthritis
     Dosage: 25 MILLIGRAM AT AN UNSPECIFIED FREQUENCY
     Route: 061
  19. COSENTYX [Suspect]
     Active Substance: SECUKINUMAB
     Indication: Psoriatic arthropathy
     Route: 042
  20. DESOXIMETASONE [Suspect]
     Active Substance: DESOXIMETASONE
     Indication: Rheumatoid arthritis
     Dosage: (DOSAGE FORM: NOT SPECIFIED) AT AN UNSPECIFIED DOSE AND FREQUENCY
     Route: 048
  21. DICLOFENAC [Suspect]
     Active Substance: DICLOFENAC
     Indication: Product used for unknown indication
     Dosage: (DOSAGE FORM: NOT SPECIFIED) 50 MILLIGRAM AT AN UNSPECIFIED FREQUENCY
     Route: 065
  22. DICLOFENAC POTASSIUM [Suspect]
     Active Substance: DICLOFENAC POTASSIUM
     Indication: Product used for unknown indication
     Dosage: 50 MILLIGRAM AT AN UNSPECIFIED FREQUENCY
     Route: 065
  23. DOXYCYCLINE HYCLATE [Suspect]
     Active Substance: DOXYCYCLINE HYCLATE
     Indication: Product used for unknown indication
     Dosage: (DOSAGE FORM: NOT SPECIFIED) 40 MILLIGRAM AT AN UNSPECIFIED FREQUENCY
     Route: 065
  24. ENBREL [Suspect]
     Active Substance: ETANERCEPT
     Indication: Rheumatoid arthritis
     Dosage: 50 MILLIGRAM 2 EVERY 1 DAYS
     Route: 058
  25. FOLIC ACID [Suspect]
     Active Substance: FOLIC ACID
     Indication: Rheumatoid arthritis
     Dosage: (DOSAGE FORM: NOT SPECIFIED) 1 MILLIGRAM AT AN UNSPECIFIED FREQUENCY
     Route: 065
  26. HUMIRA [Suspect]
     Active Substance: ADALIMUMAB
     Indication: Rheumatoid arthritis
     Dosage: (DOSAGE FORM: NOT SPECIFIED) 40 MILLIGRAM AT AN UNSPECIFIED FREQUENCY
     Route: 058
  27. HYDROXYCHLOROQUINE [Suspect]
     Active Substance: HYDROXYCHLOROQUINE
     Indication: Rheumatoid arthritis
     Dosage: (DOSAGE FORM: NOT SPECIFIED) 200 MILLIGRAM 2 EVERY 1 DAY
     Route: 048
  28. HYDROXYCHLOROQUINE [Suspect]
     Active Substance: HYDROXYCHLOROQUINE
     Indication: Product used for unknown indication
  29. KEVZARA [Suspect]
     Active Substance: SARILUMAB
     Indication: Product used for unknown indication
     Route: 065
  30. FLUMETHASONE PIVALATE [Suspect]
     Active Substance: FLUMETHASONE PIVALATE
     Indication: Product used for unknown indication
     Route: 065
  31. LYRICA [Suspect]
     Active Substance: PREGABALIN
     Indication: Fibromyalgia
     Route: 065
  32. METHOTREXATE [Suspect]
     Active Substance: METHOTREXATE
     Indication: Rheumatoid arthritis
     Dosage: (DOSAGE FORM: NOT SPECIFIED) 25 MILLIGRAM 1 EVERY 1 WEEKS
     Route: 048
  33. METHOTREXATE [Suspect]
     Active Substance: METHOTREXATE
     Dosage: (DOSAGE FORM: NOT SPECIFIED) 20 MILLIGRAM 1 EVERY 1 WEEKS
     Route: 058
  34. MYCOPHENOLATE MOFETIL [Suspect]
     Active Substance: MYCOPHENOLATE MOFETIL
     Indication: Product used for unknown indication
     Dosage: (DOSAGE FORM: NOT SPECIFIED) AT AN UNSPECIFIED DOSE AND FREQUENCY
     Route: 065
  35. NAPROXEN SODIUM [Suspect]
     Active Substance: NAPROXEN SODIUM
     Indication: Product used for unknown indication
     Dosage: (DOSAGE FORM: NOT SPECIFIED) 200 MILLIGRAM 2 EVERY 1 DAY
     Route: 065
  36. ORENCIA [Suspect]
     Active Substance: ABATACEPT
     Indication: Rheumatoid arthritis
     Dosage: 125 MILLIGRAM AT AN UNSPECIFIED FREQUENCY
     Route: 058
  37. OTEZLA [Suspect]
     Active Substance: APREMILAST
     Indication: Product used for unknown indication
     Dosage: 30 MILLIGRAM 2 EVERY 1 DAYS
     Route: 065
  38. OTEZLA [Suspect]
     Active Substance: APREMILAST
     Dosage: 3 MILLIGRAM 2 EVERY 1 DAYS
     Route: 065
  39. OXYCODONE HYDROCHLORIDE [Suspect]
     Active Substance: OXYCODONE HYDROCHLORIDE
     Indication: Product used for unknown indication
     Dosage: (DOSAGE FORM: NOT SPECIFIED) AT AN UNSPECIFIED DOSE AND FREQUENCY
     Route: 065
  40. OXYCODONE TEREPHTHALATE [Suspect]
     Active Substance: OXYCODONE TEREPHTHALATE
     Indication: Product used for unknown indication
     Dosage: (DOSAGE FORM: NOT SPECIFIED) AT AN UNSPECIFIED DOSE AND FREQUENCY
     Route: 065
  41. PANTOPRAZOLE [Suspect]
     Active Substance: PANTOPRAZOLE
     Indication: Product used for unknown indication
     Dosage: (DOSAGE FORM: NOT SPECIFIED) AT AN UNSPECIFIED DOSE AND FREQUENCY
     Route: 016
  42. PHTHALYLSULFATHIAZOLE [Suspect]
     Active Substance: PHTHALYLSULFATHIAZOLE
     Indication: Rheumatoid arthritis
     Dosage: (DOSAGE FORM: NOT SPECIFIED) 400 MILLIGRAM AT AN UNSPECIFIED FREQUENCY
     Route: 065
  43. PHTHALYLSULFATHIAZOLE [Suspect]
     Active Substance: PHTHALYLSULFATHIAZOLE
     Dosage: (DOSAGE FORM: NOT SPECIFIED) 500 MILLIGRAM AT AN UNSPECIFIED FREQUENCY
     Route: 048
  44. PLAQUENIL [Suspect]
     Active Substance: HYDROXYCHLOROQUINE SULFATE
     Indication: Rheumatoid arthritis
     Route: 065
  45. PREDNISONE [Suspect]
     Active Substance: PREDNISONE
     Indication: Product used for unknown indication
     Dosage: (DOSAGE FORM: NOT SPECIFIED) 200 MILLIGRAM AT AN UNSPECIFIED FREQUENCY
     Route: 048
  46. PSEUDOEPHEDRINE [Suspect]
     Active Substance: PSEUDOEPHEDRINE
     Indication: Rheumatoid arthritis
     Dosage: (DOSAGE FORM: NOT SPECIFIED) AT AN UNSPECIFIED DOSE AND FREQUENCY
     Route: 065
  47. QUETIAPINE FUMARATE [Suspect]
     Active Substance: QUETIAPINE FUMARATE
     Indication: Product used for unknown indication
     Dosage: (QUETIAPINE FUMARATE XR) AT AN UNSPECIFIED DOSE AND FREQUENCY
     Route: 065
  48. RAMIPRIL [Suspect]
     Active Substance: RAMIPRIL
     Indication: Product used for unknown indication
     Dosage: (DOSAGE FORM: NOT SPECIFIED) AT AN UNSPECIFIED DOSE AND FREQUENCY
     Route: 016
  49. CETIRIZINE HYDROCHLORIDE [Suspect]
     Active Substance: CETIRIZINE HYDROCHLORIDE
     Indication: Rheumatoid arthritis
     Dosage: 10 MILLIGRAM AT AN UNSPECIFIED FREQUENCY
     Route: 065
  50. REMICADE [Suspect]
     Active Substance: INFLIXIMAB
     Indication: Rheumatoid arthritis
     Dosage: (DOSAGE FORM: POWDER FOR SOLUTION INTRAVENOUS) AT AN UNSPECIFIED DOSE AND FREQUENCY
     Route: 042
  51. RITUXIMAB [Suspect]
     Active Substance: RITUXIMAB
     Indication: Rheumatoid arthritis
     Route: 042
  52. DIETARY SUPPLEMENT\HERBALS [Suspect]
     Active Substance: DIETARY SUPPLEMENT\HERBALS
     Indication: Product used for unknown indication
     Dosage: (DOSAGE FORM: NOT SPECIFIED) AT AN UNSPECIFIED DOSE AND FREQUENCY
     Route: 048
  53. SIMPONI [Suspect]
     Active Substance: GOLIMUMAB
     Indication: Rheumatoid arthritis
     Dosage: (DOSAGE FORM: SOLUTION SUBCUTANEOUS) AT AN UNSPECIFIED DOSE AND FREQUENCY
     Route: 058
  54. STELARA [Suspect]
     Active Substance: USTEKINUMAB
     Indication: Product used for unknown indication
     Dosage: (DOSAGE FORM: SOLUTION SUBCUTANEOUS) AT AN UNSPECIFIED DOSE AND FREQUENCY
     Route: 058
  55. SULFAMETHOXAZOLE [Suspect]
     Active Substance: SULFAMETHOXAZOLE
     Indication: Product used for unknown indication
     Route: 065
  56. SULFASALAZINE [Suspect]
     Active Substance: SULFASALAZINE
     Indication: Product used for unknown indication
     Dosage: (DOSAGE FORM: NOT SPECIFIED) 500 MILLIGRAM AT AN UNSPECIFIED FREQUENCY
     Route: 048
  57. TOFACITINIB [Suspect]
     Active Substance: TOFACITINIB
     Indication: Product used for unknown indication
     Dosage: 50 MILLIGRAM 2 EVERY 1 DAYS
     Route: 065
  58. TOFACITINIB [Suspect]
     Active Substance: TOFACITINIB
     Dosage: 5 MILLIGRAM 2 EVERY 1 DAYS
     Route: 065
  59. USTEKINUMAB [Suspect]
     Active Substance: USTEKINUMAB
     Indication: Product used for unknown indication
     Dosage: 45 MILLIGRAM AT AN UNSPECIFIED FREQUENCY
     Route: 042
  60. CETIRIZINE HYDROCHLORIDE\PSEUDOEPHEDRINE HYDROCHLORIDE [Suspect]
     Active Substance: CETIRIZINE HYDROCHLORIDE\PSEUDOEPHEDRINE HYDROCHLORIDE
     Indication: Rheumatoid arthritis
     Dosage: 10 MILLIGRAM AT AN UNSPECIFIED FREQUENCY
     Route: 065
  61. HYALURONIDASE (HUMAN RECOMBINANT) [Suspect]
     Active Substance: HYALURONIDASE (HUMAN RECOMBINANT)
     Indication: Rheumatoid arthritis
     Route: 065
  62. ATIVAN [Concomitant]
     Active Substance: LORAZEPAM
     Dosage: (DOSAGE FORM: NOT SPECIFIED)
     Route: 065
  63. CAFFEINE [Concomitant]
     Active Substance: CAFFEINE
     Dosage: (DOSAGE FORM: NOT SPECIFIED)
     Route: 065
  64. CODEINE [Concomitant]
     Active Substance: CODEINE
     Dosage: (DOSAGE FORM: NOT SPECIFIED)
     Route: 065
  65. DESOGESTREL\ETHINYL ESTRADIOL [Concomitant]
     Active Substance: DESOGESTREL\ETHINYL ESTRADIOL
     Route: 065
  66. ERGOCALCIFEROL [Concomitant]
     Active Substance: ERGOCALCIFEROL
     Dosage: (DOSAGE FORM: NOT SPECIFIED)
     Route: 065
  67. GLUCOSAMINE [Concomitant]
     Active Substance: GLUCOSAMINE
     Dosage: (DOSAGE FORM: NOT SPECIFIED)
     Route: 065
  68. IBUPROFEN [Concomitant]
     Active Substance: IBUPROFEN
     Dosage: (DOSAGE FORM: NOT SPECIFIED)
     Route: 065
  69. LANSOPRAZOLE [Concomitant]
     Active Substance: LANSOPRAZOLE
     Dosage: (DOSAGE FORM: CAPSULE, DELAYED RELEASE)
     Route: 065
  70. LORAZEPAM [Concomitant]
     Active Substance: LORAZEPAM
     Dosage: (DOSAGE FORM: NOT SPECIFIED)
     Route: 065
  71. SULFASALAZINE [Concomitant]
     Active Substance: SULFASALAZINE
     Dosage: (DOSAGE FORM: NOT SPECIFIED)
     Route: 065
  72. FISH OIL [Concomitant]
     Active Substance: FISH OIL
     Route: 065
  73. VITAMIN C [Concomitant]
     Active Substance: ASCORBIC ACID
     Dosage: (DOSAGE FORM: NOT SPECIFIED)
     Route: 065

REACTIONS (39)
  - Alopecia [Not Recovered/Not Resolved]
  - Anti-cyclic citrullinated peptide antibody positive [Not Recovered/Not Resolved]
  - Arthropathy [Not Recovered/Not Resolved]
  - Autoimmune disorder [Not Recovered/Not Resolved]
  - C-reactive protein [Not Recovered/Not Resolved]
  - Condition aggravated [Not Recovered/Not Resolved]
  - Duodenal ulcer perforation [Not Recovered/Not Resolved]
  - Fibromyalgia [Not Recovered/Not Resolved]
  - Gait inability [Not Recovered/Not Resolved]
  - General physical health deterioration [Not Recovered/Not Resolved]
  - Hand deformity [Not Recovered/Not Resolved]
  - Helicobacter infection [Not Recovered/Not Resolved]
  - Hip arthroplasty [Not Recovered/Not Resolved]
  - Hypoaesthesia [Not Recovered/Not Resolved]
  - Joint swelling [Not Recovered/Not Resolved]
  - Knee arthroplasty [Not Recovered/Not Resolved]
  - Lower limb fracture [Not Recovered/Not Resolved]
  - Mobility decreased [Not Recovered/Not Resolved]
  - Muscle injury [Not Recovered/Not Resolved]
  - Musculoskeletal pain [Not Recovered/Not Resolved]
  - Musculoskeletal stiffness [Not Recovered/Not Resolved]
  - Off label use [Not Recovered/Not Resolved]
  - Pain [Not Recovered/Not Resolved]
  - Pericarditis [Not Recovered/Not Resolved]
  - Psoriatic arthropathy [Not Recovered/Not Resolved]
  - Rheumatic fever [Not Recovered/Not Resolved]
  - Rheumatoid arthritis [Not Recovered/Not Resolved]
  - Rheumatoid factor positive [Not Recovered/Not Resolved]
  - Sciatica [Not Recovered/Not Resolved]
  - Sleep disorder due to general medical condition, insomnia type [Not Recovered/Not Resolved]
  - Swelling [Not Recovered/Not Resolved]
  - Swollen joint count increased [Not Recovered/Not Resolved]
  - Synovitis [Not Recovered/Not Resolved]
  - Systemic lupus erythematosus [Not Recovered/Not Resolved]
  - Fatigue [Not Recovered/Not Resolved]
  - Peripheral swelling [Not Recovered/Not Resolved]
  - Pyrexia [Not Recovered/Not Resolved]
  - Infusion related reaction [Not Recovered/Not Resolved]
  - Urticaria [Not Recovered/Not Resolved]
